FAERS Safety Report 8458991-8 (Version None)
Quarter: 2012Q2

REPORT INFORMATION
  Report Type: 
  Country: None (occurrence: None)
  Receive Date: 20120622
  Receipt Date: 20120619
  Transmission Date: 20120825
  Serious: Yes (Hospitalization)
  Sender: FDA-Public Use
  Company Number: AR-ROCHE-1071720

PATIENT
  Sex: Female

DRUGS (2)
  1. XOLAIR [Suspect]
     Indication: ASTHMA
     Dates: start: 20080101
  2. FLUTICASONE PROPIONATE/SALMETEROL [Concomitant]
     Indication: NASOPHARYNGITIS

REACTIONS (1)
  - DERMAL CYST [None]
